FAERS Safety Report 26118230 (Version 1)
Quarter: 2025Q4

REPORT INFORMATION
  Report Type: Spontaneous
  Country: US (occurrence: US)
  Receive Date: 20251203
  Receipt Date: 20251203
  Transmission Date: 20260118
  Serious: No
  Sender: LUNDBECK
  Company Number: US-LUNDBECK-DKLU4022502

PATIENT
  Age: 15 Year
  Sex: Male

DRUGS (2)
  1. SABRIL [Suspect]
     Active Substance: VIGABATRIN
     Indication: Infantile spasms
     Dosage: 30 MILLILITRE
     Route: 048
     Dates: start: 201604
  2. SABRIL [Suspect]
     Active Substance: VIGABATRIN
     Indication: Status epilepticus

REACTIONS (1)
  - Product dose omission issue [Unknown]
